FAERS Safety Report 10512716 (Version 1)
Quarter: 2014Q4

REPORT INFORMATION
  Report Type: Spontaneous
  Country: US (occurrence: US)
  Receive Date: 20141012
  Receipt Date: 20141012
  Transmission Date: 20150528
  Serious: Yes (Hospitalization)
  Sender: FDA-Public Use
  Company Number: US-BRISTOL-MYERS SQUIBB COMPANY-21472311

PATIENT
  Age: 78 Year
  Sex: Female
  Weight: 74.83 kg

DRUGS (8)
  1. ALLOPURINOL. [Concomitant]
     Active Substance: ALLOPURINOL
  2. ELIQUIS [Suspect]
     Active Substance: APIXABAN
     Dates: start: 20130827
  3. COZAAR [Concomitant]
     Active Substance: LOSARTAN POTASSIUM
  4. VITAMIN C [Concomitant]
     Active Substance: ASCORBIC ACID
  5. LIPITOR [Concomitant]
     Active Substance: ATORVASTATIN CALCIUM
  6. MAGNESIUM [Concomitant]
     Active Substance: MAGNESIUM
  7. XANAX [Concomitant]
     Active Substance: ALPRAZOLAM
  8. ZOLOFT [Concomitant]
     Active Substance: SERTRALINE HYDROCHLORIDE

REACTIONS (2)
  - Weight increased [Unknown]
  - Fall [Unknown]

NARRATIVE: CASE EVENT DATE: 2014
